FAERS Safety Report 4600055-5 (Version None)
Quarter: 2005Q1

REPORT INFORMATION
  Report Type: 
  Country: None (occurrence: None)
  Receive Date: 20050303
  Receipt Date: 20050215
  Transmission Date: 20050727
  Serious: No
  Sender: FDA-Public Use
  Company Number: EWC050242467

PATIENT
  Age: 13 Year
  Sex: Male

DRUGS (1)
  1. HUMATROPE [Suspect]
     Indication: BODY HEIGHT BELOW NORMAL
     Dosage: 123 UG DAY
     Dates: start: 20040712

REACTIONS (5)
  - ACNE [None]
  - MEDICATION ERROR [None]
  - OEDEMA PERIPHERAL [None]
  - OVERDOSE [None]
  - PHARMACEUTICAL PRODUCT COMPLAINT [None]
